FAERS Safety Report 9601628 (Version 2)
Quarter: 2013Q4

REPORT INFORMATION
  Report Type: Spontaneous
  Country: US (occurrence: US)
  Receive Date: 20131007
  Receipt Date: 20131101
  Transmission Date: 20140711
  Serious: Yes (Hospitalization)
  Sender: FDA-Public Use
  Company Number: US-BRISTOL-MYERS SQUIBB COMPANY-19493675

PATIENT
  Age: 65 Year
  Sex: Female

DRUGS (7)
  1. BYDUREON [Suspect]
     Indication: TYPE 2 DIABETES MELLITUS
     Route: 058
     Dates: start: 20130116, end: 20130914
  2. VANCOMYCIN [Concomitant]
  3. GLYBURIDE + METFORMIN HCL [Concomitant]
     Dosage: 1DF:5/500 UNITS NOS
  4. RAMIPRIL [Concomitant]
  5. ATENOLOL [Concomitant]
  6. OMEPRAZOLE [Concomitant]
  7. PRAVASTATIN SODIUM [Concomitant]

REACTIONS (1)
  - Injection site cellulitis [Recovering/Resolving]
